FAERS Safety Report 15802856 (Version 2)
Quarter: 2019Q2

REPORT INFORMATION
  Report Type: Spontaneous
  Country: DK (occurrence: DK)
  Receive Date: 20190109
  Receipt Date: 20190409
  Transmission Date: 20190711
  Serious: Yes (Other)
  Sender: FDA-Public Use
  Company Number: PHHY2019DK000505

PATIENT
  Age: 58 Year

DRUGS (4)
  1. FILGRASTIM [Concomitant]
     Active Substance: FILGRASTIM
     Indication: HAEMATOPOIETIC STEM CELL MOBILISATION
     Dosage: 0.1 MG/KG, UNK
     Route: 065
  2. ALDESLEUKIN [Suspect]
     Active Substance: ALDESLEUKIN
     Indication: OVARIAN CANCER STAGE IV
     Dosage: 78 MIU, UNK
     Route: 065
  3. FLUDARABINE [Suspect]
     Active Substance: FLUDARABINE PHOSPHATE
     Indication: OVARIAN CANCER STAGE IV
     Dosage: 25 MG/M2, QD
     Route: 065
  4. CYCLOPHOSPHAMIDE. [Suspect]
     Active Substance: CYCLOPHOSPHAMIDE
     Indication: OVARIAN CANCER STAGE IV
     Dosage: 60 MG/KG, QD
     Route: 065

REACTIONS (9)
  - Pyrexia [Unknown]
  - Lymphopenia [Unknown]
  - Hyponatraemia [Unknown]
  - Febrile neutropenia [Unknown]
  - Confusional state [Unknown]
  - Thrombocytopenia [Unknown]
  - Dyspnoea [Unknown]
  - Hypophosphataemia [Unknown]
  - Anaemia [Unknown]
